FAERS Safety Report 10340022 (Version 2)
Quarter: 2014Q3

REPORT INFORMATION
  Report Type: Report from Study
  Country: NL (occurrence: NL)
  Receive Date: 20140724
  Receipt Date: 20140815
  Transmission Date: 20150326
  Serious: Yes (Death, Other)
  Sender: FDA-Public Use
  Company Number: PHHY2014NL090942

PATIENT
  Sex: Male

DRUGS (8)
  1. ACETYLSALICYLIC ACID [Concomitant]
     Active Substance: ASPIRIN
     Dosage: 80 MG, DAILY DOSE
     Dates: start: 20051020
  2. ACLASTA [Suspect]
     Active Substance: ZOLEDRONIC ACID
     Dosage: 5 MG/100 ML ONCE EVERY 52 WEEKS
     Route: 042
     Dates: start: 20120427
  3. ATORVASTATIN [Concomitant]
     Active Substance: ATORVASTATIN
     Dosage: 40 MG, DAILY DOSE
     Dates: start: 20060925
  4. METOPROLOL [Concomitant]
     Active Substance: METOPROLOL
     Dosage: 200 MG, DAILY DOSE
     Dates: start: 20060925
  5. ACLASTA [Suspect]
     Active Substance: ZOLEDRONIC ACID
     Indication: OSTEOPOROSIS
     Dosage: 5 MG/100 ML ONCE EVERY 52 WEEKS
     Route: 042
     Dates: start: 20091218
  6. ATACAND [Concomitant]
     Active Substance: CANDESARTAN CILEXETIL
     Dosage: 16 MG, DAILY DOSE
     Dates: start: 20060925
  7. METFORMIN [Concomitant]
     Active Substance: METFORMIN HYDROCHLORIDE
     Dosage: 2 DF, UNK
     Dates: start: 20060925
  8. ACLASTA [Suspect]
     Active Substance: ZOLEDRONIC ACID
     Dosage: 5 MG/100 ML ONCE EVERY 52 WEEKS
     Route: 042
     Dates: start: 20130412

REACTIONS (4)
  - Aorto-duodenal fistula [Fatal]
  - Soft tissue inflammation [Unknown]
  - Haemorrhage [Fatal]
  - Hypovolaemic shock [Fatal]
